FAERS Safety Report 7177040-5 (Version None)
Quarter: 2010Q4

REPORT INFORMATION
  Report Type: 
  Country: None (occurrence: None)
  Receive Date: 20101220
  Receipt Date: 20101206
  Transmission Date: 20110411
  Serious: Yes (Hospitalization)
  Sender: FDA-Public Use
  Company Number: FR-ELI_LILLY_AND_COMPANY-FR201012001096

PATIENT
  Sex: Female

DRUGS (9)
  1. ALIMTA [Suspect]
     Dosage: 795 MG, UNKNOWN
     Route: 042
     Dates: start: 20100621
  2. ALIMTA [Suspect]
     Dosage: 795 MG, UNKNOWN
     Route: 042
     Dates: start: 20100712
  3. ALIMTA [Suspect]
     Dosage: 695 MG, UNKNOWN
     Route: 042
     Dates: start: 20100802
  4. CISPLATIN [Concomitant]
     Dosage: 119 MG, UNKNOWN
     Route: 042
     Dates: start: 20100621
  5. CISPLATIN [Concomitant]
     Dosage: 119 MG, UNKNOWN
     Route: 042
     Dates: start: 20100712
  6. CISPLATIN [Concomitant]
     Dosage: 119 MG, UNKNOWN
     Route: 042
     Dates: start: 20100802
  7. KARDEGIC [Concomitant]
     Dosage: 75 MG, DAILY (1/D)
     Route: 065
  8. TANAKAN [Concomitant]
     Dosage: UNK, UNKNOWN
     Route: 065
  9. LEXOMIL [Concomitant]
     Dosage: UNK, UNKNOWN
     Route: 065

REACTIONS (3)
  - ALTERED STATE OF CONSCIOUSNESS [None]
  - HYPONATRAEMIA [None]
  - VOMITING [None]
